FAERS Safety Report 5038866-7 (Version None)
Quarter: 2006Q2

REPORT INFORMATION
  Report Type: 
  Country: None (occurrence: None)
  Receive Date: 20060623
  Receipt Date: 20060613
  Transmission Date: 20061013
  Serious: Yes (Hospitalization)
  Sender: FDA-Public Use
  Company Number: USA-2006-0024401

PATIENT
  Age: 41 Year
  Sex: Female

DRUGS (10)
  1. CEFDITOREN PIVOXIL (SIMILAR TO NDA 21-222) (CEFDITOREN PIVOXIL) UNKOWN [Suspect]
     Indication: ACUTE TONSILLITIS
     Dosage: 300 MG, DAILY, ORAL
     Route: 048
     Dates: start: 20050422, end: 20050422
  2. MUCODYNE (CARBOCISTEINE) [Concomitant]
  3. LEVOFLOXACIN [Concomitant]
  4. CELESTAMINE TAB [Concomitant]
  5. BUFFERIN [Concomitant]
  6. BANAN [Concomitant]
  7. THEO-DUR [Concomitant]
  8. BIOFERMIN R (STREPTOCOCCUS FAECALIS) [Concomitant]
  9. LOXONIN (LOXOPROFEN SODIUM) [Concomitant]
  10. HUSCODE (CHLORPHENAMINE MALEATE, DIHYDROCODEINE PHOSPHATE) [Concomitant]

REACTIONS (1)
  - STEVENS-JOHNSON SYNDROME [None]
